FAERS Safety Report 9929659 (Version 5)
Quarter: 2014Q2

REPORT INFORMATION
  Report Type: Spontaneous
  Country: US (occurrence: US)
  Receive Date: 20140227
  Receipt Date: 20140513
  Transmission Date: 20141212
  Serious: Yes (Death, Hospitalization, Disabling, Other)
  Sender: FDA-Public Use
  Company Number: US-ACTELION-A-US2013-91099

PATIENT
  Age: 74 Year
  Sex: Female

DRUGS (19)
  1. TRACLEER [Suspect]
     Indication: PULMONARY ARTERIAL HYPERTENSION
     Dosage: 125 MG, BID
     Route: 048
  2. TYVASO [Concomitant]
     Dosage: 8 PUFF, UNK
  3. SILDENAFIL [Concomitant]
     Dosage: 20 MG, TID
  4. COUMADIN [Concomitant]
     Dosage: 7.5 MG, UNK
  5. TRIMOX [Concomitant]
     Dosage: 250 MG, BID
     Route: 048
  6. ALDACTONE [Concomitant]
     Dosage: 25 MG, UNK
     Route: 048
  7. COREG [Concomitant]
     Dosage: 12.5 MG, UNK
  8. DOBUTAMINE [Concomitant]
     Dosage: 5 MCG, PER MIN
  9. LASIX [Concomitant]
     Dosage: 80 MG, Q6HRS
     Route: 042
  10. VALIUM [Concomitant]
     Dosage: 10 MG, UNK
     Route: 048
  11. MORPHINE [Concomitant]
     Dosage: 50 MG, BID
  12. ASPIRIN [Concomitant]
     Dosage: 81 MG, UNK
  13. SYNTHROID [Concomitant]
     Dosage: 100 MCG, UNK
  14. LIPITOR [Concomitant]
     Dosage: 20 MG, UNK
  15. K-DUR [Concomitant]
     Dosage: 40 MEQ, TID
  16. ELAVIL [Concomitant]
     Dosage: 75 MG, UNK
  17. HYDROCORTISONE [Concomitant]
     Dosage: 1 %, QD
  18. LORTAB [Concomitant]
     Dosage: PRN10500 UNK, UNK
  19. TRAZODONE [Concomitant]
     Dosage: 150 MG, UNK
     Route: 048

REACTIONS (17)
  - Cor pulmonale [Fatal]
  - Mental status changes [Recovered/Resolved]
  - Hallucination [Recovered/Resolved]
  - Confusional state [Recovered/Resolved]
  - Atrial fibrillation [Recovering/Resolving]
  - Lymphoedema [Recovering/Resolving]
  - Anxiety [Recovering/Resolving]
  - Depression [Recovering/Resolving]
  - Cardiac failure [Recovering/Resolving]
  - Fluid retention [Recovering/Resolving]
  - Peripheral swelling [Recovering/Resolving]
  - Swelling [Recovering/Resolving]
  - Abdominal distension [Recovering/Resolving]
  - Cardiac failure congestive [Recovering/Resolving]
  - Disease progression [Not Recovered/Not Resolved]
  - Presyncope [Unknown]
  - Anaemia [Recovering/Resolving]
